FAERS Safety Report 6347824-1 (Version None)
Quarter: 2009Q3

REPORT INFORMATION
  Report Type: 
  Country: None (occurrence: None)
  Receive Date: 20090910
  Receipt Date: 20090902
  Transmission Date: 20100115
  Serious: Yes (Congenital Anomaly)
  Sender: FDA-Public Use
  Company Number: B0590181A

PATIENT
  Sex: Female
  Weight: 67 kg

DRUGS (1)
  1. MALANIL [Suspect]
     Indication: MALARIA PROPHYLAXIS
     Dosage: 1TAB PER DAY
     Route: 065
     Dates: start: 20090424, end: 20090508

REACTIONS (3)
  - ABORTION INDUCED [None]
  - ANENCEPHALY [None]
  - DRUG EXPOSURE DURING PREGNANCY [None]
